FAERS Safety Report 14349748 (Version 1)
Quarter: 2018Q1

REPORT INFORMATION
  Report Type: Spontaneous
  Country: EG (occurrence: EG)
  Receive Date: 20180104
  Receipt Date: 20180104
  Transmission Date: 20180509
  Serious: Yes (Death, Other)
  Sender: FDA-Public Use
  Company Number: EG-BRISTOL-MYERS SQUIBB COMPANY-BMS-2018-000476

PATIENT
  Sex: Male
  Weight: 80 kg

DRUGS (1)
  1. OPDIVO [Suspect]
     Active Substance: NIVOLUMAB
     Indication: LUNG CANCER METASTATIC
     Dosage: 3 MG/KG, Q2WK
     Route: 042
     Dates: start: 20161120, end: 20171216

REACTIONS (2)
  - Death [Fatal]
  - Hospitalisation [Unknown]
